FAERS Safety Report 4734536-0 (Version None)
Quarter: 2005Q3

REPORT INFORMATION
  Report Type: 
  Country: None (occurrence: None)
  Receive Date: 20050804
  Receipt Date: 20050727
  Transmission Date: 20060218
  Serious: Yes (Other)
  Sender: FDA-Public Use
  Company Number: US-SANOFI-SYNTHELABO-A03200502264

PATIENT
  Sex: Female
  Weight: 66.2 kg

DRUGS (11)
  1. ELOXATIN [Suspect]
     Indication: COLON CANCER
     Route: 042
     Dates: start: 20050718, end: 20050718
  2. CALCIUM GLUCONATE [Suspect]
     Indication: NEUROTOXICITY
     Dosage: UNK
     Route: 042
  3. MAGNESIUM [Suspect]
     Indication: DRUG USE FOR UNKNOWN INDICATION
     Dosage: UNK
     Route: 042
  4. FLUOROURACIL [Concomitant]
     Dosage: UNK
     Route: 042
  5. LEUCOVORIN [Concomitant]
     Dosage: UNK
     Route: 042
  6. DECADRON [Concomitant]
     Route: 042
  7. ALOXI [Concomitant]
     Dosage: UNK
     Route: 042
  8. BENADRYL [Concomitant]
     Dosage: UNK
     Route: 042
  9. TYLENOL (CAPLET) [Concomitant]
     Dosage: UNK
     Route: 048
     Dates: start: 20050718
  10. DIOVAN [Concomitant]
     Dosage: UNK
     Route: 048
  11. LEVOXYL [Concomitant]
     Dosage: UNK
     Route: 048

REACTIONS (5)
  - BLOOD PRESSURE DECREASED [None]
  - LOSS OF CONSCIOUSNESS [None]
  - ORTHOSTATIC HYPOTENSION [None]
  - SYNCOPE [None]
  - URINARY INCONTINENCE [None]
